FAERS Safety Report 15440366 (Version 1)
Quarter: 2018Q3

REPORT INFORMATION
  Report Type: Spontaneous
  Country: GB (occurrence: GB)
  Receive Date: 20180928
  Receipt Date: 20180928
  Transmission Date: 20181010
  Serious: Yes (Life-Threatening)
  Sender: FDA-Public Use
  Company Number: GB-CELGENEUS-GBR-20180908838

PATIENT
  Age: 57 Year
  Sex: Female
  Weight: 163 kg

DRUGS (1)
  1. OTEZLA [Suspect]
     Active Substance: APREMILAST
     Indication: PSORIATIC ARTHROPATHY
     Dosage: 60 MILLIGRAM
     Route: 048
     Dates: start: 20180104, end: 20180906

REACTIONS (2)
  - Suicidal ideation [Unknown]
  - Depression [Unknown]
